FAERS Safety Report 9419320 (Version 1)
Quarter: 2013Q3

REPORT INFORMATION
  Report Type: Spontaneous
  Country: US (occurrence: US)
  Receive Date: 20130725
  Receipt Date: 20130725
  Transmission Date: 20140515
  Serious: No
  Sender: FDA-Public Use
  Company Number: US-GLAXOSMITHKLINE-A1013549A

PATIENT
  Age: 66 Year
  Sex: Male

DRUGS (5)
  1. LAMICTAL [Suspect]
     Indication: CONVULSION
     Route: 048
     Dates: start: 20130128
  2. DILANTIN [Concomitant]
  3. KEPPRA [Concomitant]
  4. CRESTOR [Concomitant]
  5. ASPIRIN [Concomitant]

REACTIONS (5)
  - Arthralgia [Unknown]
  - Tenderness [Unknown]
  - Contusion [Unknown]
  - Gait disturbance [Unknown]
  - Bedridden [Unknown]
